FAERS Safety Report 4717721-3 (Version None)
Quarter: 2005Q3

REPORT INFORMATION
  Report Type: 
  Country: None (occurrence: None)
  Receive Date: 20050713
  Receipt Date: 20050615
  Transmission Date: 20060218
  Serious: Yes (Other)
  Sender: FDA-Public Use
  Company Number: HQWYE547920JUN05

PATIENT
  Age: 48 Year
  Sex: Female

DRUGS (2)
  1. ALAVERT [Suspect]
     Indication: HEADACHE
     Dosage: 1 TABLET DAILY OR AS NEEDED, ORAL
     Route: 048
  2. ALAVERT [Suspect]
     Indication: LACRIMATION INCREASED
     Dosage: 1 TABLET DAILY OR AS NEEDED, ORAL
     Route: 048

REACTIONS (2)
  - GLOSSITIS [None]
  - GLOSSODYNIA [None]
